FAERS Safety Report 10897720 (Version 3)
Quarter: 2015Q2

REPORT INFORMATION
  Report Type: Spontaneous
  Country: FR (occurrence: FR)
  Receive Date: 20150309
  Receipt Date: 20150430
  Transmission Date: 20150821
  Serious: Yes (Hospitalization)
  Sender: FDA-Public Use
  Company Number: FR-TEVA-544382ISR

PATIENT
  Age: 66 Year
  Sex: Male

DRUGS (5)
  1. EMEND [Suspect]
     Active Substance: APREPITANT
     Indication: PROPHYLAXIS
     Route: 048
     Dates: start: 20141124, end: 20150108
  2. LERCAN [Concomitant]
     Active Substance: LERCANIDIPINE
     Dosage: 1 DOSAGE FORMS DAILY;
  3. KARDEGIC [Concomitant]
     Active Substance: ASPIRIN LYSINE
     Dosage: 1 DOSAGE FORMS DAILY;
  4. CISPLATINE MYLAN 50 MG/100 ML [Suspect]
     Active Substance: CISPLATIN
     Indication: LIP AND/OR ORAL CAVITY CANCER
     Dosage: ONE COURSE EVERY THREE WEEKS. TOTAL OF THREE COURSES OF CHEMOTHERAPY.
     Route: 042
     Dates: start: 20141124, end: 20150108
  5. TEVAGRASTIM [Suspect]
     Active Substance: FILGRASTIM
     Indication: PROPHYLAXIS
     Dosage: DAY 5 TO DAY 9 IN EACH COURSE
     Route: 058
     Dates: start: 20141128, end: 20150116

REACTIONS (2)
  - Hypersensitivity vasculitis [Recovered/Resolved]
  - Vasculitis [Recovered/Resolved]

NARRATIVE: CASE EVENT DATE: 20150131
